FAERS Safety Report 9772199 (Version 3)
Quarter: 2014Q2

REPORT INFORMATION
  Report Type: Spontaneous
  Country: US (occurrence: US)
  Receive Date: 20131219
  Receipt Date: 20140506
  Transmission Date: 20141212
  Serious: Yes (Other)
  Sender: FDA-Public Use
  Company Number: US-BAYER-2013-155154

PATIENT
  Age: 25 Year
  Sex: Female
  Weight: 56.24 kg

DRUGS (1)
  1. MIRENA [Suspect]
     Indication: CONTRACEPTION
     Dosage: 20 MCG/24HR, CONT
     Route: 015
     Dates: start: 20120109, end: 20130418

REACTIONS (11)
  - Uterine perforation [None]
  - Genital haemorrhage [None]
  - Procedural haemorrhage [None]
  - Post procedural haemorrhage [None]
  - Migraine [None]
  - Injury [None]
  - Emotional distress [None]
  - Device dislocation [None]
  - Device defective [None]
  - Pain [None]
  - Procedural pain [None]
